FAERS Safety Report 13960087 (Version 19)
Quarter: 2019Q3

REPORT INFORMATION
  Report Type: Report from Study
  Country: DE (occurrence: DE)
  Receive Date: 20170912
  Receipt Date: 20190916
  Transmission Date: 20191004
  Serious: Yes (Hospitalization, Other)
  Sender: FDA-Public Use
  Company Number: DE-BRISTOL-MYERS SQUIBB COMPANY-BMS-2017-053068

PATIENT
  Age: 75 Year
  Sex: Male

DRUGS (28)
  1. POLIDOCANOL. [Concomitant]
     Active Substance: POLIDOCANOL
     Indication: PRODUCT USED FOR UNKNOWN INDICATION
     Dosage: UNK
     Route: 065
  2. NIVOLUMAB [Suspect]
     Active Substance: NIVOLUMAB
     Indication: MALIGNANT MELANOMA
     Dosage: 222 MILLIGRAM, Q2WK
     Route: 042
     Dates: start: 20170531
  3. NIVOLUMAB [Suspect]
     Active Substance: NIVOLUMAB
     Indication: PRODUCT USED FOR UNKNOWN INDICATION
     Dosage: 222 MILLIGRAM
     Route: 042
     Dates: start: 20171108
  4. IPILIMUMAB [Suspect]
     Active Substance: IPILIMUMAB
     Indication: PRODUCT USED FOR UNKNOWN INDICATION
     Dosage: 258 MILLIGRAM, Q3WK
     Route: 065
     Dates: start: 20170621, end: 20170621
  5. IBUPROFEN. [Suspect]
     Active Substance: IBUPROFEN
     Indication: PRODUCT USED FOR UNKNOWN INDICATION
     Dosage: UNK
     Route: 065
  6. MOMETASONE FUROATE. [Concomitant]
     Active Substance: MOMETASONE FUROATE
     Indication: PRODUCT USED FOR UNKNOWN INDICATION
     Dosage: UNK
     Route: 065
     Dates: start: 20180419
  7. INFLIXIMAB [Concomitant]
     Active Substance: INFLIXIMAB
     Indication: PRODUCT USED FOR UNKNOWN INDICATION
     Dosage: UNK
     Route: 065
  8. PREDNISOLONE HEMISUCCINATE [Concomitant]
     Active Substance: PREDNISOLONE HEMISUCCINATE
     Indication: PRODUCT USED FOR UNKNOWN INDICATION
     Dosage: UNK
     Route: 065
  9. NIVOLUMAB [Suspect]
     Active Substance: NIVOLUMAB
     Indication: PRODUCT USED FOR UNKNOWN INDICATION
     Dosage: 86 MILLIGRAM, Q3WK
     Route: 042
     Dates: start: 20170621, end: 20170621
  10. NIVOLUMAB [Suspect]
     Active Substance: NIVOLUMAB
     Indication: PRODUCT USED FOR UNKNOWN INDICATION
     Dosage: 246 MILLIGRAM
     Route: 042
     Dates: start: 20170901
  11. NIVOLUMAB [Suspect]
     Active Substance: NIVOLUMAB
     Indication: PRODUCT USED FOR UNKNOWN INDICATION
     Dosage: 219.6 MILLIGRAM
     Route: 042
     Dates: start: 20171220
  12. SODIUM CHLORIDE. [Concomitant]
     Active Substance: SODIUM CHLORIDE
     Indication: PRODUCT USED FOR UNKNOWN INDICATION
     Dosage: UNK
     Route: 065
  13. DEXAMETHASON                       /00016001/ [Concomitant]
     Active Substance: DEXAMETHASONE
     Indication: PRODUCT USED FOR UNKNOWN INDICATION
     Dosage: 8 MILLIGRAM, QD
     Route: 048
     Dates: start: 20171117, end: 20171122
  14. NIVOLUMAB [Suspect]
     Active Substance: NIVOLUMAB
     Indication: PRODUCT USED FOR UNKNOWN INDICATION
     Dosage: 243 MILLIGRAM
     Route: 042
     Dates: start: 20180123
  15. NIVOLUMAB [Suspect]
     Active Substance: NIVOLUMAB
     Indication: PRODUCT USED FOR UNKNOWN INDICATION
     Dosage: 87 MILLIGRAM, Q3WK
     Route: 042
     Dates: start: 20170712
  16. NIVOLUMAB [Suspect]
     Active Substance: NIVOLUMAB
     Indication: PRODUCT USED FOR UNKNOWN INDICATION
     Dosage: 222 MILLIGRAM
     Route: 042
     Dates: start: 20171122
  17. NIVOLUMAB [Suspect]
     Active Substance: NIVOLUMAB
     Indication: PRODUCT USED FOR UNKNOWN INDICATION
     Dosage: 243 MILLIGRAM
     Route: 042
     Dates: start: 20180109
  18. IPILIMUMAB [Suspect]
     Active Substance: IPILIMUMAB
     Indication: PRODUCT USED FOR UNKNOWN INDICATION
     Dosage: 261 MILLIGRAM, Q3WK
     Route: 065
     Dates: start: 20170712
  19. PREDNISOLONE. [Concomitant]
     Active Substance: PREDNISOLONE
     Indication: PRODUCT USED FOR UNKNOWN INDICATION
     Dosage: UNK
     Route: 065
  20. LOPERAMIDE HYDROCHLORIDE. [Concomitant]
     Active Substance: LOPERAMIDE HYDROCHLORIDE
     Indication: PRODUCT USED FOR UNKNOWN INDICATION
     Dosage: UNK
     Route: 065
  21. DEXAMETHASON                       /00016001/ [Concomitant]
     Active Substance: DEXAMETHASONE
     Indication: PRODUCT USED FOR UNKNOWN INDICATION
     Dosage: 4 MILLIGRAM, QD
     Route: 048
     Dates: start: 20171207
  22. FUROSEMID                          /00032601/ [Concomitant]
     Active Substance: FUROSEMIDE
     Indication: PRODUCT USED FOR UNKNOWN INDICATION
     Dosage: 80 MILLIGRAM
     Route: 065
     Dates: start: 20170215, end: 20170920
  23. IPILIMUMAB [Suspect]
     Active Substance: IPILIMUMAB
     Indication: MALIGNANT MELANOMA
     Dosage: 258 MILLIGRAM, Q3WK
     Route: 065
     Dates: start: 20170531, end: 20170531
  24. TOREMIFENI DIHYDROGENOCITRAS [Concomitant]
     Indication: PRODUCT USED FOR UNKNOWN INDICATION
     Dosage: 10 MILLIGRAM
     Route: 042
  25. NIVOLUMAB [Suspect]
     Active Substance: NIVOLUMAB
     Indication: PRODUCT USED FOR UNKNOWN INDICATION
     Dosage: 86 MILLIGRAM, Q3WK
     Route: 042
     Dates: start: 20170531, end: 20170531
  26. NIVOLUMAB [Suspect]
     Active Substance: NIVOLUMAB
     Indication: PRODUCT USED FOR UNKNOWN INDICATION
     Dosage: 246 MILLIGRAM
     Route: 042
     Dates: start: 20171024
  27. NIVOLUMAB [Suspect]
     Active Substance: NIVOLUMAB
     Indication: PRODUCT USED FOR UNKNOWN INDICATION
     Dosage: 219 MILLIGRAM
     Route: 042
     Dates: start: 20171206
  28. CARBIMAZOLE [Suspect]
     Active Substance: CARBIMAZOLE
     Indication: PRODUCT USED FOR UNKNOWN INDICATION
     Dosage: UNK
     Route: 065

REACTIONS (15)
  - Fatigue [Recovered/Resolved]
  - Off label use [Unknown]
  - Hypersensitivity [Recovered/Resolved]
  - Hypothyroidism [Unknown]
  - Rash [Unknown]
  - Dehydration [Recovered/Resolved]
  - Colitis [Recovered/Resolved]
  - Hyperthyroidism [Recovered/Resolved]
  - Inappropriate antidiuretic hormone secretion [Recovered/Resolved]
  - Hypocalcaemia [Recovered/Resolved]
  - Fall [Recovered/Resolved]
  - Rash maculo-papular [Recovered/Resolved]
  - Urticaria [Recovered/Resolved]
  - Left ventricular dysfunction [Not Recovered/Not Resolved]
  - Diarrhoea [Not Recovered/Not Resolved]

NARRATIVE: CASE EVENT DATE: 20170604
